FAERS Safety Report 5846328-X (Version None)
Quarter: 2008Q3

REPORT INFORMATION
  Report Type: 
  Country: None (occurrence: None)
  Receive Date: 20080815
  Receipt Date: 20080730
  Transmission Date: 20090109
  Serious: No
  Sender: FDA-Public Use
  Company Number: US-BAYER-200829871NA

PATIENT
  Age: 47 Year
  Weight: 81 kg

DRUGS (1)
  1. MAGNEVIST [Suspect]
     Indication: NUCLEAR MAGNETIC RESONANCE IMAGING ABDOMINAL
     Dosage: TOTAL DAILY DOSE: 17 ML  UNIT DOSE: 100 ML
     Route: 042
     Dates: start: 20080729, end: 20080729

REACTIONS (3)
  - ORAL PRURITUS [None]
  - PRURITUS [None]
  - URTICARIA [None]
